FAERS Safety Report 12477207 (Version 1)
Quarter: 2016Q2

REPORT INFORMATION
  Report Type: Spontaneous
  Country: US (occurrence: US)
  Receive Date: 20160617
  Receipt Date: 20160617
  Transmission Date: 20160815
  Serious: Yes (Hospitalization)
  Sender: FDA-Public Use
  Company Number: US-TEVA-668011USA

PATIENT
  Age: 83 Year
  Sex: Male
  Weight: 92.3 kg

DRUGS (16)
  1. ENALAPRIL [Concomitant]
     Active Substance: ENALAPRIL
     Dates: start: 2013
  2. CRESTOR [Concomitant]
     Active Substance: ROSUVASTATIN CALCIUM
     Dates: start: 2013
  3. FAMOTIDINE. [Concomitant]
     Active Substance: FAMOTIDINE
     Dates: start: 2013
  4. COREG [Concomitant]
     Active Substance: CARVEDILOL
     Dates: start: 2014
  5. HYDRALAZINE [Concomitant]
     Active Substance: HYDRALAZINE HYDROCHLORIDE
     Dates: start: 2013
  6. ISOSORBIDE. [Concomitant]
     Active Substance: ISOSORBIDE
     Dates: start: 2013
  7. GABAPENTIN. [Concomitant]
     Active Substance: GABAPENTIN
     Dates: start: 2013
  8. METOLAZONE. [Concomitant]
     Active Substance: METOLAZONE
     Dates: start: 2013
  9. POTASSIUM CHLORIDE. [Concomitant]
     Active Substance: POTASSIUM CHLORIDE
     Dates: start: 20150915
  10. FUROSEMIDE. [Concomitant]
     Active Substance: FUROSEMIDE
     Dates: start: 2011
  11. COLCRYS [Concomitant]
     Active Substance: COLCHICINE
     Dates: start: 2013
  12. PF-04950615;PLACEBO (CODE NOT BROKEN) [Concomitant]
     Active Substance: BOCOCIZUMAB
     Indication: CARDIOVASCULAR EVENT PROPHYLAXIS
     Route: 065
     Dates: start: 20151116
  13. LANTUS [Concomitant]
     Active Substance: INSULIN GLARGINE
     Dates: start: 2013
  14. TRAMADOL. [Concomitant]
     Active Substance: TRAMADOL
     Dates: start: 20151201
  15. WARFARIN [Suspect]
     Active Substance: WARFARIN
     Indication: CARDIOVASCULAR DISORDER
     Dosage: 5 MILLIGRAM DAILY;
     Route: 065
     Dates: start: 2008, end: 20160317
  16. FLOMAX [Concomitant]
     Active Substance: TAMSULOSIN HYDROCHLORIDE
     Dates: start: 2013

REACTIONS (2)
  - Pneumonia [Recovered/Resolved]
  - Haemoptysis [Recovered/Resolved]

NARRATIVE: CASE EVENT DATE: 20160313
